FAERS Safety Report 15177006 (Version 1)
Quarter: 2018Q3

REPORT INFORMATION
  Report Type: Spontaneous
  Country: PT (occurrence: PT)
  Receive Date: 20180720
  Receipt Date: 20180720
  Transmission Date: 20181010
  Serious: Yes (Hospitalization, Other)
  Sender: FDA-Public Use
  Company Number: PT-009507513-1807PRT007464

PATIENT
  Age: 69 Year
  Sex: Male

DRUGS (1)
  1. KEYTRUDA [Suspect]
     Active Substance: PEMBROLIZUMAB
     Indication: TRANSITIONAL CELL CARCINOMA
     Dosage: DOSAGE 1MG/KG

REACTIONS (4)
  - Hypothyroidism [Not Recovered/Not Resolved]
  - Pericardial effusion [Recovering/Resolving]
  - Hyponatraemia [Not Recovered/Not Resolved]
  - Pleural effusion [Recovering/Resolving]
